FAERS Safety Report 8287604-3 (Version None)
Quarter: 2012Q2

REPORT INFORMATION
  Report Type: 
  Country: None (occurrence: None)
  Receive Date: 20120411
  Receipt Date: 20120328
  Transmission Date: 20120825
  Serious: Yes (Death)
  Sender: FDA-Public Use
  Company Number: FK201200969

PATIENT
  Age: 35 Week
  Sex: Male

DRUGS (5)
  1. PROPOFOL [Suspect]
     Indication: INDUCTION OF ANAESTHESIA
     Dates: start: 20110402, end: 20110402
  2. NAVOBAN (TROPISETRON HYDROCHLORIDE) [Suspect]
     Indication: PRODUCT USED FOR UNKNOWN INDICATION
  3. FENTANYL [Suspect]
     Indication: PRODUCT USED FOR UNKNOWN INDICATION
  4. MORPHINE [Suspect]
     Indication: PRODUCT USED FOR UNKNOWN INDICATION
  5. PRIMPERAN TAB [Suspect]
     Indication: PRODUCT USED FOR UNKNOWN INDICATION

REACTIONS (3)
  - POLYHYDRAMNIOS [None]
  - MATERNAL DRUGS AFFECTING FOETUS [None]
  - FOETAL DEATH [None]
